FAERS Safety Report 21392389 (Version 1)
Quarter: 2022Q3

REPORT INFORMATION
  Report Type: Spontaneous
  Country: FI (occurrence: FI)
  Receive Date: 20220929
  Receipt Date: 20220929
  Transmission Date: 20221027
  Serious: Yes (Disabling)
  Sender: FDA-Public Use
  Company Number: FI-ANIPHARMA-2022-FI-000010

PATIENT
  Age: 73 Year
  Sex: Female

DRUGS (12)
  1. ANASTROZOLE [Suspect]
     Active Substance: ANASTROZOLE
     Indication: Breast cancer
     Dosage: 1 MG DAILY
     Route: 048
     Dates: start: 20211123, end: 20220204
  2. PRAZOSIN HYDROCHLORIDE [Concomitant]
     Active Substance: PRAZOSIN HYDROCHLORIDE
     Dosage: 1 MG DAILY
     Route: 048
     Dates: start: 20211016, end: 20211023
  3. HYDROCHLOROTHIAZIDE\VALSARTAN [Concomitant]
     Active Substance: HYDROCHLOROTHIAZIDE\VALSARTAN
     Dosage: 1 DF DAILY
     Route: 048
  4. FUROSEMIDE [Concomitant]
     Active Substance: FUROSEMIDE
     Dosage: 10 MG DAILY
     Route: 048
     Dates: start: 20211016, end: 20211023
  5. LETROZOLE [Suspect]
     Active Substance: LETROZOLE
     Dosage: 2.5 MG DAILY
     Route: 048
     Dates: start: 20210826, end: 20211113
  6. EXEMESTANE [Suspect]
     Active Substance: EXEMESTANE
     Dosage: 25 MG DAILY
     Route: 048
     Dates: start: 20220307, end: 20220407
  7. TAMOXIFEN CITRATE [Suspect]
     Active Substance: TAMOXIFEN CITRATE
     Dosage: 20 MG DAILY
     Route: 048
     Dates: start: 20220508, end: 20220514
  8. LISINOPRIL/HYDROCHLOROTHIAZIDE ORION [Concomitant]
     Dosage: 1 DF DAILY
     Route: 048
     Dates: start: 20220106, end: 20220112
  9. SPIRONOLACTONE [Concomitant]
     Active Substance: SPIRONOLACTONE
     Dosage: 12.5 MG DAILY
     Route: 048
     Dates: start: 20220112
  10. CARVERATIO [Concomitant]
     Dosage: 12.5 MG DAILY
     Route: 048
     Dates: start: 20211123, end: 20211129
  11. ETORICOXIB KRKA [Concomitant]
     Dosage: 30 MG DAILY
     Route: 048
     Dates: start: 20211228, end: 20220101
  12. TELMISARTAN [Concomitant]
     Active Substance: TELMISARTAN
     Dosage: 40 MG DAILY
     Route: 048
     Dates: start: 20220112, end: 20220301

REACTIONS (21)
  - Pulmonary embolism [Not Recovered/Not Resolved]
  - Blood pressure increased [Not Recovered/Not Resolved]
  - Influenza like illness [Not Recovered/Not Resolved]
  - Rhinitis [Not Recovered/Not Resolved]
  - Abdominal pain [Not Recovered/Not Resolved]
  - Eye pain [Not Recovered/Not Resolved]
  - Osteoarthritis [Not Recovered/Not Resolved]
  - Fatigue [Not Recovered/Not Resolved]
  - Bone pain [Not Recovered/Not Resolved]
  - Myalgia [Not Recovered/Not Resolved]
  - Asthenia [Not Recovered/Not Resolved]
  - Cold sweat [Not Recovered/Not Resolved]
  - Arthralgia [Not Recovered/Not Resolved]
  - Nausea [Not Recovered/Not Resolved]
  - Gangrene [Not Recovered/Not Resolved]
  - Meniscus injury [Not Recovered/Not Resolved]
  - Fracture [Not Recovered/Not Resolved]
  - Pain in extremity [Not Recovered/Not Resolved]
  - Tendon pain [Not Recovered/Not Resolved]
  - Gait disturbance [Not Recovered/Not Resolved]
  - Synovial cyst [Not Recovered/Not Resolved]

NARRATIVE: CASE EVENT DATE: 20210101
